FAERS Safety Report 7386453-8 (Version None)
Quarter: 2011Q1

REPORT INFORMATION
  Report Type: 
  Country: None (occurrence: None)
  Receive Date: 20110329
  Receipt Date: 20110329
  Transmission Date: 20110831
  Serious: Yes (Life-Threatening, Hospitalization, Other)
  Sender: FDA-Public Use
  Company Number: None

PATIENT
  Age: 45 Year
  Sex: Female
  Weight: 54.4316 kg

DRUGS (2)
  1. AVELOX [Suspect]
     Indication: LOCALISED INFECTION
     Dosage: 2 PILLS, 200 MG EACH ONCE PO ONCE
     Route: 048
     Dates: start: 20110322, end: 20110322
  2. AVELOX [Suspect]
     Indication: POST PROCEDURAL INFECTION
     Dosage: 2 PILLS, 200 MG EACH ONCE PO ONCE
     Route: 048
     Dates: start: 20110322, end: 20110322

REACTIONS (7)
  - SWOLLEN TONGUE [None]
  - OEDEMA MOUTH [None]
  - NAUSEA [None]
  - DRY MOUTH [None]
  - DYSPNOEA [None]
  - SPEECH DISORDER [None]
  - THROAT TIGHTNESS [None]
